FAERS Safety Report 4391212-4 (Version None)
Quarter: 2004Q2

REPORT INFORMATION
  Report Type: 
  Country: None (occurrence: None)
  Receive Date: 20040621
  Receipt Date: 20040220
  Transmission Date: 20050107
  Serious: Yes (Other)
  Sender: FDA-Public Use
  Company Number: USA-2002-0000665

PATIENT
  Age: 49 Year
  Sex: Female
  Weight: 99.8 kg

DRUGS (16)
  1. OXYCONTIN [Suspect]
     Indication: PAIN
     Dosage: 40 MG, PRN, ORAL
     Route: 048
     Dates: start: 19990101
  2. CAPOTEN [Concomitant]
  3. NORVASC [Concomitant]
  4. VALIUM [Concomitant]
  5. PERCOCET [Concomitant]
  6. PREVACID [Concomitant]
  7. ROXICODONE [Concomitant]
  8. NAPRELAN [Concomitant]
  9. PRILOSEC [Concomitant]
  10. PAXIL [Concomitant]
  11. PREMARIN [Concomitant]
  12. FLEXERIL [Concomitant]
  13. ALUPENT [Concomitant]
  14. ATROVENT [Concomitant]
  15. PROMETHAZINE [Concomitant]
  16. ARTHROTEC [Concomitant]

REACTIONS (3)
  - DRUG DEPENDENCE [None]
  - DRUG WITHDRAWAL SYNDROME [None]
  - FALL [None]
